FAERS Safety Report 17171850 (Version 1)
Quarter: 2019Q4

REPORT INFORMATION
  Report Type: Spontaneous
  Country: US (occurrence: US)
  Receive Date: 20191218
  Receipt Date: 20191218
  Transmission Date: 20200122
  Serious: No
  Sender: FDA-Public Use
  Company Number: US-SA-2019SA346974

PATIENT
  Age: 59 Year
  Sex: Male

DRUGS (1)
  1. DUPIXENT [Suspect]
     Active Substance: DUPILUMAB
     Dosage: 300 MG, QOW
     Route: 058
     Dates: start: 20191002

REACTIONS (5)
  - Dry throat [Unknown]
  - Injection site pain [Unknown]
  - Genital erythema [Unknown]
  - Urticaria [Unknown]
  - Genital swelling [Unknown]

NARRATIVE: CASE EVENT DATE: 20191207
